FAERS Safety Report 20735016 (Version 2)
Quarter: 2022Q2

REPORT INFORMATION
  Report Type: Report from Study
  Country: MX (occurrence: MX)
  Receive Date: 20220421
  Receipt Date: 20220504
  Transmission Date: 20220721
  Serious: Yes (Hospitalization, Other)
  Sender: FDA-Public Use
  Company Number: MX-NOVARTISPH-NVSC2022MX092370

PATIENT
  Age: 68 Year
  Sex: Female
  Weight: 54 kg

DRUGS (6)
  1. METFORMIN HYDROCHLORIDE\VILDAGLIPTIN [Suspect]
     Active Substance: METFORMIN HYDROCHLORIDE\VILDAGLIPTIN
     Indication: Blood glucose abnormal
     Dosage: 1 DOSAGE FORM, BID (50/850 MG)
     Route: 048
  2. METFORMIN HYDROCHLORIDE\VILDAGLIPTIN [Suspect]
     Active Substance: METFORMIN HYDROCHLORIDE\VILDAGLIPTIN
     Indication: Renal disorder
     Dosage: 1 DOSAGE FORM, QD (50/850 MG) (8 YEARS AGO)
     Route: 048
  3. METFORMIN HYDROCHLORIDE\VILDAGLIPTIN [Suspect]
     Active Substance: METFORMIN HYDROCHLORIDE\VILDAGLIPTIN
     Indication: Cardiac disorder
  4. METFORMIN HYDROCHLORIDE\VILDAGLIPTIN [Suspect]
     Active Substance: METFORMIN HYDROCHLORIDE\VILDAGLIPTIN
     Indication: Diabetes mellitus
  5. VILDAGLIPTIN [Suspect]
     Active Substance: VILDAGLIPTIN
     Indication: Diabetes mellitus
     Dosage: 1 DOSAGE FORM, BID (50MG) STARTED 15 YRS AGO STOPED 8 YRS AGO
     Route: 048
  6. ENALAPRIL [Concomitant]
     Active Substance: ENALAPRIL
     Indication: Hypertension
     Dosage: 1 DOSAGE FORM, BID STARTED 18 YRS AGO
     Route: 048

REACTIONS (8)
  - Pelvic fracture [Recovered/Resolved with Sequelae]
  - Accident [Unknown]
  - Fall [Unknown]
  - Gait disturbance [Unknown]
  - Blood glucose abnormal [Recovered/Resolved]
  - Stress [Recovering/Resolving]
  - Blood pressure increased [Recovered/Resolved]
  - Product use in unapproved indication [Unknown]

NARRATIVE: CASE EVENT DATE: 20190301
